FAERS Safety Report 12240232 (Version 2)
Quarter: 2016Q2

REPORT INFORMATION
  Report Type: Report from Study
  Country: US (occurrence: US)
  Receive Date: 20160405
  Receipt Date: 20160527
  Transmission Date: 20160815
  Serious: No
  Sender: FDA-Public Use
  Company Number: US-MDT-ADR-2016-00310

PATIENT
  Age: 66 Year
  Sex: Male

DRUGS (5)
  1. MORPHINE [Suspect]
     Active Substance: MORPHINE
     Dosage: 6.804 MG/DAY
     Route: 037
     Dates: start: 20130613
  2. OXYCODONE [Suspect]
     Active Substance: OXYCODONE
     Dosage: 30 MG, 8/DAY
     Route: 048
  3. MORPHINE SULFATE. [Suspect]
     Active Substance: MORPHINE SULFATE
     Dosage: 8.515 MG/DAY
     Route: 037
     Dates: end: 20130613
  4. BACLOFEN. [Suspect]
     Active Substance: BACLOFEN
     Route: 037
  5. DILAUDID [Suspect]
     Active Substance: HYDROMORPHONE HYDROCHLORIDE
     Dosage: 0.6804 MG/DAY
     Route: 037

REACTIONS (2)
  - No therapeutic response [Recovered/Resolved]
  - Pain [Recovered/Resolved]

NARRATIVE: CASE EVENT DATE: 20130613
